FAERS Safety Report 6269737-6 (Version None)
Quarter: 2009Q3

REPORT INFORMATION
  Report Type: 
  Country: None (occurrence: None)
  Receive Date: 20090716
  Receipt Date: 20090708
  Transmission Date: 20100115
  Serious: Yes (Other)
  Sender: FDA-Public Use
  Company Number: US-ASTRAZENECA-2009UW13430

PATIENT
  Age: 38 Year
  Sex: Male

DRUGS (5)
  1. SEROQUEL [Suspect]
     Indication: BIPOLAR DISORDER
     Route: 048
     Dates: start: 20020101
  2. SEROQUEL [Suspect]
     Indication: DEPRESSION
     Route: 048
     Dates: start: 20020101
  3. RISPERDAL [Concomitant]
     Dates: start: 20020101, end: 20060101
  4. GEODON [Concomitant]
  5. NAVANE [Concomitant]
     Dates: start: 20090101

REACTIONS (2)
  - DIABETES MELLITUS [None]
  - HIV INFECTION [None]
